FAERS Safety Report 21352913 (Version 2)
Quarter: 2022Q3

REPORT INFORMATION
  Report Type: Spontaneous
  Country: US (occurrence: US)
  Receive Date: 20220920
  Receipt Date: 20220926
  Transmission Date: 20221026
  Serious: No
  Sender: FDA-Public Use
  Company Number: US-JNJFOC-20220936889

PATIENT
  Age: 63 Year
  Sex: Female

DRUGS (1)
  1. MENS ROGAINE EXTRA STRENGTH [Suspect]
     Active Substance: MINOXIDIL
     Indication: Alopecia
     Dosage: JUST PUT IT IN HANDS AND PUT IN ON SCALP ONCE A DAY
     Route: 061
     Dates: start: 20220914

REACTIONS (5)
  - Application site irritation [Recovering/Resolving]
  - Product use issue [Unknown]
  - Intentional product misuse [Unknown]
  - Product closure removal difficult [Unknown]
  - Product container issue [Unknown]

NARRATIVE: CASE EVENT DATE: 20220914
